FAERS Safety Report 8379062-5 (Version None)
Quarter: 2012Q2

REPORT INFORMATION
  Report Type: 
  Country: None (occurrence: None)
  Receive Date: 20120523
  Receipt Date: 20120509
  Transmission Date: 20120825
  Serious: Yes (Hospitalization)
  Sender: FDA-Public Use
  Company Number: NL-RANBAXY-2012RR-56213

PATIENT
  Sex: Male

DRUGS (11)
  1. VERAPAMIL HCL A RETARD TABLET MGA 240 MG [Concomitant]
     Indication: PRODUCT USED FOR UNKNOWN INDICATION
     Dosage: 240 MG, QD
     Route: 065
     Dates: start: 20040122
  2. SPIRIVA INHALPDR 18 MICROG [Concomitant]
     Indication: PRODUCT USED FOR UNKNOWN INDICATION
     Dosage: 18 UG, QD
     Route: 065
     Dates: start: 20061124
  3. CIPROFLOXACIN [Suspect]
     Indication: DIVERTICULITIS
     Dosage: 500 MG, BID
     Route: 065
     Dates: start: 20111222, end: 20111223
  4. NEBILET TABLET 5 MG [Concomitant]
     Indication: PRODUCT USED FOR UNKNOWN INDICATION
     Dosage: 5 MG, QD
     Route: 065
     Dates: start: 20040122
  5. CARBASALAATCALCIUM CARDIO PCH SACHET 100 MG [Concomitant]
     Indication: PRODUCT USED FOR UNKNOWN INDICATION
     Dosage: 100 MG, QD
     Dates: start: 20100624, end: 20111223
  6. MOVICOLON NATUREL POEDER VOOR DRANK IN SACHET [Concomitant]
     Indication: PRODUCT USED FOR UNKNOWN INDICATION
     Dosage: 1 DF, QD
     Route: 065
     Dates: start: 20111219, end: 20111223
  7. ACETAMINOPHEN [Suspect]
     Indication: ABDOMINAL PAIN
     Dosage: UNK
     Route: 065
     Dates: start: 20111219, end: 20111223
  8. LANOXIN TABLET 0.125 MG [Concomitant]
     Indication: PRODUCT USED FOR UNKNOWN INDICATION
     Dosage: 0.125 MG, QD
     Route: 065
     Dates: start: 20030101, end: 20111223
  9. FUROSEMIDE ACTAVIS TABLET 40 MG [Concomitant]
     Indication: PRODUCT USED FOR UNKNOWN INDICATION
     Dosage: 40 MG, QD
     Route: 065
     Dates: start: 20040122
  10. SIMVASTATIN [Suspect]
     Indication: HYPERCHOLESTEROLAEMIA
     Dosage: 20 MG, QD
     Route: 065
     Dates: start: 20110623, end: 20111224
  11. LANOXIN TABLET 0.125 MG [Concomitant]

REACTIONS (1)
  - JAUNDICE CHOLESTATIC [None]
